FAERS Safety Report 25876793 (Version 1)
Quarter: 2025Q4

REPORT INFORMATION
  Report Type: Spontaneous
  Country: CN (occurrence: CN)
  Receive Date: 20251003
  Receipt Date: 20251003
  Transmission Date: 20260118
  Serious: Yes (Other)
  Sender: SANOFI AVENTIS
  Company Number: CN-SA-2025SA293203

PATIENT
  Age: 54 Year
  Sex: Male
  Weight: 80 kg

DRUGS (1)
  1. ZOLPIDEM TARTRATE [Suspect]
     Active Substance: ZOLPIDEM TARTRATE
     Indication: Insomnia
     Dosage: 10 MG, QD
     Route: 048
     Dates: start: 20250923, end: 20250923

REACTIONS (3)
  - Disorganised speech [Recovered/Resolved]
  - Irritability [Recovered/Resolved]
  - Dysphoria [Recovered/Resolved]

NARRATIVE: CASE EVENT DATE: 20250923
